FAERS Safety Report 14993944 (Version 1)
Quarter: 2018Q2

REPORT INFORMATION
  Report Type: Spontaneous
  Country: DE (occurrence: DE)
  Receive Date: 20180611
  Receipt Date: 20180611
  Transmission Date: 20180711
  Serious: Yes (Hospitalization)
  Sender: FDA-Public Use
  Company Number: DE-TEVA-2018-DE-904649

PATIENT
  Age: 77 Year
  Sex: Female
  Weight: 59.9 kg

DRUGS (13)
  1. L-THYROX [Concomitant]
     Active Substance: LEVOTHYROXINE SODIUM
     Dosage: 25 ?G, 1-0-0-0, TABLET
     Route: 048
  2. ASPIRIN. [Concomitant]
     Active Substance: ASPIRIN
     Dosage: 100 MG, 1-0-0-0,TABLET
     Route: 048
  3. FENTANYL. [Concomitant]
     Active Substance: FENTANYL
     Dosage: 75 ?G, ACCORDING TO SCHEME, PATCH TRANSDERMAL
     Route: 058
  4. HCT [Concomitant]
     Active Substance: HYDROCHLOROTHIAZIDE
     Dosage: 12.5 MG, 1-0-0-0, TABLET
     Route: 048
  5. IMATINIB [Suspect]
     Active Substance: IMATINIB
     Dosage: 600 MG, 1-0-0-0, TABLET
     Route: 048
  6. COTRIM [Concomitant]
     Active Substance: SULFAMETHOXAZOLE\TRIMETHOPRIM
     Dosage: 160|800 MG, ACCORDING TO SCHEME, TABLETS
     Route: 048
  7. OSTEOTRIOL 0,25MIKROGRAMM [Concomitant]
     Dosage: 0.25 ?G, 0-1-0-0
  8. ATORVASTATIN [Concomitant]
     Active Substance: ATORVASTATIN
     Dosage: 40 MG, 0-0-1-0, TABLET
     Route: 048
  9. METOPROLOL. [Concomitant]
     Active Substance: METOPROLOL
     Dosage: 23.75 MG, 1-0-0-0, TABLET
     Route: 048
  10. DECORTIN [Concomitant]
     Active Substance: PREDNISONE
     Dosage: 7.5 MG, 1-0-0-0, TABLET
     Route: 048
  11. TORASEMID [Concomitant]
     Active Substance: TORSEMIDE
     Dosage: 5 MG, 1-0-0-0, TABLET
     Route: 048
  12. MAGNESIUM VERLA [Concomitant]
     Active Substance: MAGNESIUM
     Dosage: 121.5 MG, 1-0-0-0, BAG
     Route: 048
  13. CLOPIDOGREL [Concomitant]
     Active Substance: CLOPIDOGREL BISULFATE
     Dosage: 75 MG, 1-0-0-0, TABLETTEN
     Route: 048

REACTIONS (6)
  - Vomiting [Unknown]
  - Chronic lymphocytic leukaemia [Unknown]
  - Diarrhoea [Unknown]
  - General physical health deterioration [Unknown]
  - Weight decreased [Unknown]
  - Fatigue [Unknown]
